FAERS Safety Report 6719456-4 (Version None)
Quarter: 2010Q2

REPORT INFORMATION
  Report Type: 
  Country: None (occurrence: None)
  Receive Date: 20100510
  Receipt Date: 20100510
  Transmission Date: 20101027
  Serious: Yes (Life-Threatening, Hospitalization)
  Sender: FDA-Public Use
  Company Number: None

PATIENT
  Age: 52 Year
  Sex: Female
  Weight: 56.246 kg

DRUGS (1)
  1. DIDANOSINE [Suspect]
     Indication: HIV INFECTION
     Dosage: NOT SURE. STANDARD DOSE DAILY PO
     Route: 048

REACTIONS (10)
  - ASCITES [None]
  - ENCEPHALOPATHY [None]
  - FLUID RETENTION [None]
  - HEPATIC CIRRHOSIS [None]
  - HEPATIC FIBROSIS [None]
  - HEPATITIS [None]
  - PORTAL HYPERTENSION [None]
  - PORTAL VEIN THROMBOSIS [None]
  - VARICES OESOPHAGEAL [None]
  - VARICOSE VEIN [None]
